FAERS Safety Report 7319850-7 (Version None)
Quarter: 2011Q1

REPORT INFORMATION
  Report Type: 
  Country: None (occurrence: None)
  Receive Date: 20110228
  Receipt Date: 20101025
  Transmission Date: 20110831
  Serious: No
  Sender: FDA-Public Use
  Company Number: A0888631A

PATIENT
  Age: 19 Year
  Sex: Male

DRUGS (2)
  1. KEPPRA [Concomitant]
  2. LAMICTAL [Suspect]
     Dosage: 100MG PER DAY
     Route: 048
     Dates: start: 20100301

REACTIONS (1)
  - RASH [None]
